FAERS Safety Report 23119164 (Version 1)
Quarter: 2023Q4

REPORT INFORMATION
  Report Type: Spontaneous
  Country: BR (occurrence: BR)
  Receive Date: 20231028
  Receipt Date: 20231028
  Transmission Date: 20240110
  Serious: Yes (Other)
  Sender: FDA-Public Use
  Company Number: BR-TAKEDA-2023TUS103852

PATIENT
  Age: 44 Year
  Sex: Male
  Weight: 86 kg

DRUGS (4)
  1. DEXILANT [Suspect]
     Active Substance: DEXLANSOPRAZOLE
     Indication: Gastritis erosive
     Dosage: UNK
     Route: 048
     Dates: start: 202103
  2. DEXILANT [Suspect]
     Active Substance: DEXLANSOPRAZOLE
     Indication: Erosive oesophagitis
     Dosage: 60 MILLIGRAM, QD
     Route: 048
  3. CORDAREX [Concomitant]
     Active Substance: AMIODARONE
     Dosage: 1.5 MILLIGRAM
     Route: 048
  4. CORDAREX [Concomitant]
     Active Substance: AMIODARONE
     Dosage: 5 MILLIGRAM
     Route: 048

REACTIONS (11)
  - Asphyxia [Unknown]
  - Off label use [Unknown]
  - Blood pressure abnormal [Unknown]
  - Panic attack [Unknown]
  - Tension [Unknown]
  - Pain [Unknown]
  - Tremor [Unknown]
  - Palpitations [Unknown]
  - Anxiety [Unknown]
  - Dyspepsia [Unknown]
  - Insomnia [Unknown]

NARRATIVE: CASE EVENT DATE: 20210301
